FAERS Safety Report 24684357 (Version 1)
Quarter: 2024Q4

REPORT INFORMATION
  Report Type: Spontaneous
  Country: FR (occurrence: FR)
  Receive Date: 20241202
  Receipt Date: 20241202
  Transmission Date: 20250114
  Serious: Yes (Other)
  Sender: BOEHRINGER INGELHEIM
  Company Number: None

PATIENT
  Age: 61 Year
  Sex: Female

DRUGS (4)
  1. VIRAMUNE [Suspect]
     Active Substance: NEVIRAPINE
     Indication: HIV infection
     Route: 048
     Dates: start: 20090824, end: 20240205
  2. TRUVADA [Suspect]
     Active Substance: EMTRICITABINE\TENOFOVIR DISOPROXIL FUMARATE
     Indication: Product used for unknown indication
     Route: 048
     Dates: start: 20090824, end: 20240205
  3. EFAVIRENZ\EMTRICITABINE\TENOFOVIR DISOPROXIL MALEATE [Suspect]
     Active Substance: EFAVIRENZ\EMTRICITABINE\TENOFOVIR DISOPROXIL MALEATE
     Indication: HIV infection
     Route: 048
     Dates: start: 20200302, end: 20240205
  4. NEVIRAPINE [Suspect]
     Active Substance: NEVIRAPINE
     Indication: Product used for unknown indication
     Route: 048
     Dates: start: 20200302, end: 20240205

REACTIONS (1)
  - Osteoporosis [Not Recovered/Not Resolved]

NARRATIVE: CASE EVENT DATE: 20240205
